FAERS Safety Report 14688596 (Version 1)
Quarter: 2018Q1

REPORT INFORMATION
  Report Type: Spontaneous
  Country: IN (occurrence: IN)
  Receive Date: 20180328
  Receipt Date: 20180328
  Transmission Date: 20180509
  Serious: Yes (Other)
  Sender: FDA-Public Use
  Company Number: IN-MYLANLABS-2018M1017788

PATIENT
  Age: 70 Year
  Sex: Female

DRUGS (1)
  1. AZACITIDINE. [Suspect]
     Active Substance: AZACITIDINE
     Indication: MYELODYSPLASTIC SYNDROME
     Dosage: 75 MG/M2 (120 MG) DAILY FOR 7 DAYS EVERY 4 WEEKS
     Route: 058

REACTIONS (2)
  - Renal impairment [Unknown]
  - Hyperkalaemia [Unknown]
